FAERS Safety Report 9195237 (Version 1)
Quarter: 2013Q1

REPORT INFORMATION
  Report Type: Spontaneous
  Country: US (occurrence: US)
  Receive Date: 20130328
  Receipt Date: 20130328
  Transmission Date: 20140127
  Serious: No
  Sender: FDA-Public Use
  Company Number: US-ALLERGAN-1218026US

PATIENT
  Age: 42 Year
  Sex: Female

DRUGS (3)
  1. LATISSE 0.03% [Suspect]
     Indication: GROWTH OF EYELASHES
     Dosage: 2 GTT, QOD
     Route: 061
  2. LATISSE 0.03% [Suspect]
     Dosage: 2 GTT, QHS
     Route: 061
     Dates: start: 20120829
  3. CELEXA                             /00582602/ [Concomitant]
     Indication: ANXIETY
     Dosage: 40 MG, QD
     Route: 048

REACTIONS (4)
  - Inappropriate schedule of drug administration [Unknown]
  - Madarosis [Unknown]
  - Therapeutic response decreased [Unknown]
  - Eyelids pruritus [Recovering/Resolving]
